FAERS Safety Report 11151883 (Version 11)
Quarter: 2017Q1

REPORT INFORMATION
  Report Type: Spontaneous
  Country: US (occurrence: US)
  Receive Date: 20150601
  Receipt Date: 20170331
  Transmission Date: 20170428
  Serious: Yes (Other)
  Sender: FDA-Public Use
  Company Number: US-PFIZER INC-2015180243

PATIENT
  Age: 61 Year
  Sex: Female
  Weight: 80.27 kg

DRUGS (13)
  1. NASONEX [Concomitant]
     Active Substance: MOMETASONE FUROATE
     Dosage: UNK
  2. VITAMIN D [Concomitant]
     Active Substance: CHOLECALCIFEROL
     Indication: BONE DISORDER
     Dosage: UNK
  3. SUTENT [Suspect]
     Active Substance: SUNITINIB MALATE
     Indication: GASTROINTESTINAL STROMAL TUMOUR
     Dosage: 37.5 MG, CYCLIC (DAILY)
     Route: 048
     Dates: start: 20150413, end: 20170118
  4. SUTENT [Suspect]
     Active Substance: SUNITINIB MALATE
     Dosage: 37.5 MG, CYCLIC (DAILY)
     Route: 048
     Dates: start: 20170220
  5. BABY ASPIRIN [Concomitant]
     Active Substance: ASPIRIN
     Dosage: UNK
  6. PRILOSEC [Concomitant]
     Active Substance: OMEPRAZOLE MAGNESIUM
     Dosage: UNK
  7. KLONOPIN [Concomitant]
     Active Substance: CLONAZEPAM
     Dosage: UNK
  8. DEXILANT [Concomitant]
     Active Substance: DEXLANSOPRAZOLE
     Dosage: UNK
  9. TRAMADOL. [Concomitant]
     Active Substance: TRAMADOL
     Dosage: UNK, AS NEEDED
  10. METOPROLOL. [Concomitant]
     Active Substance: METOPROLOL
     Dosage: UNK
  11. LISINOPRIL. [Concomitant]
     Active Substance: LISINOPRIL
     Dosage: 10 MG, UNK
  12. LASIX [Concomitant]
     Active Substance: FUROSEMIDE
     Indication: PERIPHERAL SWELLING
     Dosage: UNK, AS NEEDED
  13. LISINOPRIL. [Concomitant]
     Active Substance: LISINOPRIL
     Dosage: 20 MG, UNK

REACTIONS (46)
  - Asthenia [Unknown]
  - Fatigue [Unknown]
  - Swelling [Unknown]
  - Nausea [Unknown]
  - Hiccups [Unknown]
  - Erythema [Unknown]
  - Dysphonia [Unknown]
  - Mass [Recovered/Resolved]
  - Gastrooesophageal reflux disease [Unknown]
  - Hypertension [Unknown]
  - Diarrhoea [Unknown]
  - Platelet count decreased [Recovered/Resolved]
  - Weight decreased [Unknown]
  - Limb discomfort [Unknown]
  - Nasal congestion [Unknown]
  - Epistaxis [Not Recovered/Not Resolved]
  - Abdominal pain [Not Recovered/Not Resolved]
  - Oropharyngeal pain [Unknown]
  - Dyspepsia [Unknown]
  - Gastroenteritis [Unknown]
  - Dry mouth [Unknown]
  - Hyperhidrosis [Unknown]
  - Feeling abnormal [Unknown]
  - Feeling hot [Unknown]
  - Chills [Unknown]
  - Decreased appetite [Unknown]
  - Oral mucosal blistering [Not Recovered/Not Resolved]
  - Cough [Unknown]
  - Rash [Unknown]
  - Abdominal discomfort [Unknown]
  - Bone pain [Unknown]
  - Tongue blistering [Unknown]
  - Dizziness [Unknown]
  - Headache [Unknown]
  - Flushing [Unknown]
  - Pain in extremity [Unknown]
  - Arthritis [Unknown]
  - Dysgeusia [Unknown]
  - Skin discolouration [Unknown]
  - Pain [Unknown]
  - Abdominal distension [Unknown]
  - Dyspnoea [Recovered/Resolved]
  - Pruritus [Unknown]
  - Oedema peripheral [Unknown]
  - Balance disorder [Unknown]
  - Abdominal distension [Unknown]

NARRATIVE: CASE EVENT DATE: 2015
